FAERS Safety Report 4967567-6 (Version None)
Quarter: 2006Q2

REPORT INFORMATION
  Report Type: 
  Country: None (occurrence: None)
  Receive Date: 20060410
  Receipt Date: 20060330
  Transmission Date: 20061013
  Serious: Yes (Other)
  Sender: FDA-Public Use
  Company Number: CH-GLAXOSMITHKLINE-B0419518A

PATIENT
  Sex: Female
  Weight: 2.4 kg

DRUGS (3)
  1. ZOVIRAX [Suspect]
     Indication: ACNE
     Dosage: 50MG AS REQUIRED
     Dates: start: 20041202, end: 20050105
  2. ERYAKNEN [Suspect]
     Indication: ACNE
     Dates: start: 20041202, end: 20050105
  3. CLINDAMYCIN PHOSPHATE [Suspect]
     Indication: ACNE
     Dates: start: 20041202, end: 20050105

REACTIONS (2)
  - DRUG EXPOSURE DURING PREGNANCY [None]
  - FOETAL GROWTH RETARDATION [None]
